FAERS Safety Report 20226338 (Version 3)
Quarter: 2022Q1

REPORT INFORMATION
  Report Type: Report from Study
  Country: US (occurrence: None)
  Receive Date: 20211224
  Receipt Date: 20220216
  Transmission Date: 20220424
  Serious: Yes (Hospitalization, Other)
  Sender: FDA-Public Use
  Company Number: 2021A773114

PATIENT
  Age: 53 Year
  Sex: Male
  Weight: 86 kg

DRUGS (22)
  1. AZD-4573 [Suspect]
     Active Substance: AZD-4573
     Indication: Refractory cancer
     Dosage: 6.0MG ONCE/SINGLE ADMINISTRATION
     Route: 042
     Dates: start: 20211007, end: 20211007
  2. AZD-4573 [Suspect]
     Active Substance: AZD-4573
     Indication: Refractory cancer
     Dosage: 6.0MG ONCE/SINGLE ADMINISTRATION
     Route: 042
     Dates: start: 20211021, end: 20211021
  3. AZD-4573 [Suspect]
     Active Substance: AZD-4573
     Indication: Refractory cancer
     Dosage: 6.0MG ONCE/SINGLE ADMINISTRATION
     Route: 042
     Dates: start: 20211027, end: 20211027
  4. AZD-4573 [Suspect]
     Active Substance: AZD-4573
     Indication: Refractory cancer
     Dosage: 12.0MG ONCE/SINGLE ADMINISTRATION
     Route: 042
     Dates: start: 20211102, end: 20211102
  5. AZD-4573 [Suspect]
     Active Substance: AZD-4573
     Indication: Refractory cancer
     Dosage: 12.0MG ONCE/SINGLE ADMINISTRATION
     Route: 042
     Dates: start: 20211118, end: 20211118
  6. AZD-4573 [Suspect]
     Active Substance: AZD-4573
     Indication: Refractory cancer
     Dosage: 12.0MG ONCE/SINGLE ADMINISTRATION
     Route: 042
     Dates: start: 20211124, end: 20211124
  7. AZD-4573 [Suspect]
     Active Substance: AZD-4573
     Indication: Refractory cancer
     Dosage: 12.0MG ONCE/SINGLE ADMINISTRATION
     Route: 042
     Dates: start: 20211203, end: 20211203
  8. AZD-4573 [Suspect]
     Active Substance: AZD-4573
     Indication: Refractory cancer
     Dosage: 12.0MG ONCE/SINGLE ADMINISTRATION
     Route: 042
     Dates: start: 20211208, end: 20211208
  9. AZD-4573 [Suspect]
     Active Substance: AZD-4573
     Indication: Refractory cancer
     Dosage: 12.0MG ONCE/SINGLE ADMINISTRATION
     Route: 042
     Dates: start: 20211216, end: 20211216
  10. AZD-4573 [Suspect]
     Active Substance: AZD-4573
     Indication: Refractory cancer
     Dosage: 12.0MG ONCE/SINGLE ADMINISTRATION
     Route: 042
     Dates: start: 20211222, end: 20211222
  11. ACALABRUTINIB [Suspect]
     Active Substance: ACALABRUTINIB
     Indication: Refractory cancer
     Route: 048
     Dates: start: 20211007, end: 20211008
  12. ACALABRUTINIB [Suspect]
     Active Substance: ACALABRUTINIB
     Indication: Refractory cancer
     Route: 048
     Dates: start: 20211011, end: 20211027
  13. ACALABRUTINIB [Suspect]
     Active Substance: ACALABRUTINIB
     Indication: Refractory cancer
     Route: 048
     Dates: start: 20211102, end: 20211109
  14. ACALABRUTINIB [Suspect]
     Active Substance: ACALABRUTINIB
     Indication: Refractory cancer
     Route: 048
     Dates: start: 20211118, end: 20211228
  15. ACALABRUTINIB [Suspect]
     Active Substance: ACALABRUTINIB
     Indication: Refractory cancer
     Route: 048
     Dates: start: 20211011, end: 20211011
  16. ALLOPURINOL [Concomitant]
     Active Substance: ALLOPURINOL
     Indication: Prophylaxis
     Route: 048
     Dates: start: 20211003, end: 20211110
  17. ALLOPURINOL [Concomitant]
     Active Substance: ALLOPURINOL
     Indication: Prophylaxis
     Route: 048
     Dates: start: 20211111
  18. ASPIRIN [Concomitant]
     Active Substance: ASPIRIN
     Indication: Prophylaxis
     Route: 048
     Dates: start: 2007
  19. ATROPINE [Concomitant]
     Active Substance: ATROPINE
     Indication: Chemotherapy side effect prophylaxis
     Dosage: 0.5 MG PRIOR TO AZD INFUSION
     Route: 042
     Dates: start: 20211007
  20. CETIRIZINE HYDROCHLORIDE [Concomitant]
     Active Substance: CETIRIZINE HYDROCHLORIDE
     Indication: Seasonal allergy
     Dosage: 10.0MG AS REQUIRED
     Route: 048
  21. GABAPENTIN [Concomitant]
     Active Substance: GABAPENTIN
     Indication: Peripheral sensory neuropathy
     Route: 048
     Dates: start: 20201214
  22. DEXAMETHASONE [Concomitant]
     Active Substance: DEXAMETHASONE
     Indication: Chemotherapy side effect prophylaxis
     Dosage: 8 MG PRIOR TO AZD INFUSION
     Route: 042
     Dates: start: 20211007

REACTIONS (1)
  - Drug-induced liver injury [Recovered/Resolved]

NARRATIVE: CASE EVENT DATE: 20211008
